FAERS Safety Report 4925482-8 (Version None)
Quarter: 2006Q1

REPORT INFORMATION
  Report Type: 
  Country: None (occurrence: None)
  Receive Date: 20060228
  Receipt Date: 20050225
  Transmission Date: 20060701
  Serious: Yes (Other)
  Sender: FDA-Public Use
  Company Number: US-GLAXOSMITHKLINE-A0547640A

PATIENT
  Age: 53 Year
  Sex: Male

DRUGS (3)
  1. LAMICTAL [Suspect]
     Route: 048
     Dates: start: 20040719, end: 20050124
  2. ZITHROMAX [Suspect]
     Indication: INFECTION
     Route: 048
     Dates: start: 20050120, end: 20050124
  3. ZYPREXA [Suspect]
     Route: 048
     Dates: start: 20050118, end: 20050124

REACTIONS (3)
  - INFECTION [None]
  - RASH GENERALISED [None]
  - RASH MACULAR [None]
